FAERS Safety Report 5759233-4 (Version None)
Quarter: 2008Q2

REPORT INFORMATION
  Report Type: 
  Country: None (occurrence: None)
  Receive Date: 20080604
  Receipt Date: 20080527
  Transmission Date: 20081010
  Serious: Yes (Other)
  Sender: FDA-Public Use
  Company Number: FR-PFIZER INC-2008045443

PATIENT
  Sex: Male

DRUGS (4)
  1. TAHOR [Suspect]
  2. MOPRAL [Interacting]
  3. PLAVIX [Concomitant]
  4. TRIATEC [Concomitant]

REACTIONS (2)
  - DRUG INTERACTION [None]
  - THROMBOSIS [None]
